FAERS Safety Report 10427868 (Version 2)
Quarter: 2014Q3

REPORT INFORMATION
  Report Type: Report from Study
  Country: JP (occurrence: JP)
  Receive Date: 20140903
  Receipt Date: 20140912
  Transmission Date: 20150326
  Serious: Yes (Other)
  Sender: FDA-Public Use
  Company Number: JP-BRISTOL-MYERS SQUIBB COMPANY-21359633

PATIENT
  Age: 57 Year
  Sex: Male

DRUGS (5)
  1. ABILIFY DISCMELT [Suspect]
     Active Substance: ARIPIPRAZOLE
     Indication: BIPOLAR DISORDER
     Dosage: 20JAN - 2FEB 6MG?3FEB - 5FEB 3MG
     Route: 048
     Dates: start: 20140120, end: 20140205
  2. TOPIRAMATE. [Suspect]
     Active Substance: TOPIRAMATE
     Indication: BIPOLAR DISORDER
     Dosage: 7JAN-19JAN 50MG?20JAN-29JAN 100MG
     Route: 048
     Dates: start: 20140107, end: 20140129
  3. SELENICA-R [Suspect]
     Active Substance: SELENIUM
     Indication: BIPOLAR DISORDER
     Route: 048
     Dates: start: 20140117, end: 20140205
  4. ZOPICLONE [Suspect]
     Active Substance: ZOPICLONE
     Indication: BIPOLAR DISORDER
     Route: 048
     Dates: start: 20140117, end: 20140202
  5. SEROQUEL [Suspect]
     Active Substance: QUETIAPINE FUMARATE
     Indication: BIPOLAR DISORDER
     Route: 048
     Dates: start: 20140117, end: 20140205

REACTIONS (1)
  - Ileus [Recovering/Resolving]

NARRATIVE: CASE EVENT DATE: 20140203
